FAERS Safety Report 5809748-5 (Version None)
Quarter: 2008Q3

REPORT INFORMATION
  Report Type: 
  Country: None (occurrence: None)
  Receive Date: 20080715
  Receipt Date: 20080707
  Transmission Date: 20090109
  Serious: Yes (Hospitalization)
  Sender: FDA-Public Use
  Company Number: US-GENENTECH-264068

PATIENT
  Sex: Male

DRUGS (2)
  1. BEVACIZUMAB [Suspect]
     Indication: TONSIL CANCER
     Dosage: UNK
     Dates: start: 20080501
  2. CISPLATIN [Concomitant]
     Indication: TONSIL CANCER
     Dosage: UNK
     Dates: start: 20080501

REACTIONS (2)
  - LYMPHOPENIA [None]
  - RECTAL HAEMORRHAGE [None]
